FAERS Safety Report 7244357-5 (Version None)
Quarter: 2011Q1

REPORT INFORMATION
  Report Type: 
  Country: None (occurrence: None)
  Receive Date: 20110119
  Receipt Date: 20110119
  Transmission Date: 20110831
  Serious: Yes (Hospitalization)
  Sender: FDA-Public Use
  Company Number: None

PATIENT
  Sex: Female
  Weight: 79.3795 kg

DRUGS (6)
  1. VITAMIN B6 [Concomitant]
  2. RAD001 10MG NOVARTIS [Suspect]
  3. ZOLOFT [Concomitant]
  4. AVASTIN [Suspect]
  5. AMBIEN [Concomitant]
  6. AZOR [Concomitant]

REACTIONS (1)
  - ANAL FISSURE [None]
